FAERS Safety Report 20093910 (Version 1)
Quarter: 2021Q4

REPORT INFORMATION
  Report Type: Report from Study
  Country: BR (occurrence: BR)
  Receive Date: 20211121
  Receipt Date: 20211121
  Transmission Date: 20220303
  Serious: Yes (Hospitalization, Other)
  Sender: FDA-Public Use
  Company Number: BR-ABBVIE-21K-020-4113121-00

PATIENT
  Sex: Male
  Weight: 65.5 kg

DRUGS (3)
  1. RINVOQ [Suspect]
     Active Substance: UPADACITINIB
     Indication: Rheumatoid arthritis
     Route: 048
     Dates: end: 2021
  2. RINVOQ [Suspect]
     Active Substance: UPADACITINIB
     Route: 048
     Dates: start: 20211112
  3. RIVOTRIL [Concomitant]
     Active Substance: CLONAZEPAM
     Indication: Insomnia
     Route: 048

REACTIONS (5)
  - Prostatic disorder [Not Recovered/Not Resolved]
  - Therapeutic response unexpected [Unknown]
  - Arthralgia [Recovering/Resolving]
  - Pre-existing condition improved [Unknown]
  - Arthralgia [Recovered/Resolved]
